FAERS Safety Report 4560964-2 (Version None)
Quarter: 2005Q1

REPORT INFORMATION
  Report Type: 
  Country: None (occurrence: None)
  Receive Date: 20050126
  Receipt Date: 20040331
  Transmission Date: 20050727
  Serious: No
  Sender: FDA-Public Use
  Company Number: US-BRISTOL-MYERS SQUIBB COMPANY-12547725

PATIENT
  Age: 65 Year
  Sex: Male
  Weight: 105 kg

DRUGS (5)
  1. METFORMIN HCL [Suspect]
     Dosage: PATIENT WAS TAKING 500MG 1X DAY FOR ONE MONTH, THEN INCREASED TO 500 MG 2X DAY ON 30-MAR-2004
     Route: 048
  2. DIOVAN [Concomitant]
  3. MULTI-VITAMIN [Concomitant]
  4. ASPIRIN [Concomitant]
  5. SAW PALMETTO [Concomitant]

REACTIONS (2)
  - MICTURITION URGENCY [None]
  - POLLAKIURIA [None]
